FAERS Safety Report 4271794-3 (Version None)
Quarter: 2004Q1

REPORT INFORMATION
  Report Type: 
  Country: None (occurrence: None)
  Receive Date: 20040115
  Receipt Date: 20031215
  Transmission Date: 20041129
  Serious: Yes (Hospitalization)
  Sender: FDA-Public Use
  Company Number: JP-GLAXOSMITHKLINE-B0317754A

PATIENT
  Age: 75 Year
  Sex: Female
  Weight: 48 kg

DRUGS (10)
  1. VALTREX [Suspect]
     Indication: HERPES ZOSTER
     Dosage: 1000MG PER DAY
     Route: 048
     Dates: start: 20031209, end: 20031210
  2. ELASTASE [Concomitant]
     Indication: HYPERLIPIDAEMIA
     Dosage: 10800IU PER DAY
     Route: 048
  3. FAMOTIDINE [Concomitant]
     Indication: STOMACH DISCOMFORT
     Dosage: 10MG PER DAY
     Route: 048
  4. SODIUM POLYSTYRENE SULFONATE [Concomitant]
     Indication: HYPERKALAEMIA
     Dosage: 5G PER DAY
     Route: 048
  5. ALFACALCIDOL [Concomitant]
     Indication: RENAL FAILURE CHRONIC
     Dosage: .25MCG PER DAY
     Route: 048
  6. TROXIPIDE [Concomitant]
     Indication: STOMACH DISCOMFORT
     Dosage: 300MG PER DAY
     Route: 048
  7. PREDNISOLONE [Concomitant]
     Indication: RHEUMATOID ARTHRITIS
     Dosage: 10MG PER DAY
     Route: 048
  8. VALSARTAN [Concomitant]
     Indication: HYPERTENSION
     Dosage: 80MG PER DAY
     Route: 048
     Dates: start: 20030807
  9. GLICLAZIDE [Concomitant]
     Indication: DIABETES MELLITUS
     Dosage: 20MG PER DAY
     Route: 048
  10. SODIUM PICOSULFATE [Concomitant]
     Indication: CONSTIPATION
     Dosage: 5MG PER DAY
     Route: 048
     Dates: start: 20031201

REACTIONS (3)
  - DIZZINESS [None]
  - GAIT DISTURBANCE [None]
  - NERVOUS SYSTEM DISORDER [None]
